FAERS Safety Report 5622436-3 (Version None)
Quarter: 2008Q1

REPORT INFORMATION
  Report Type: 
  Country: None (occurrence: None)
  Receive Date: 20080114
  Receipt Date: 20070731
  Transmission Date: 20080703
  Serious: Yes (Hospitalization)
  Sender: FDA-Public Use
  Company Number: A03200704930

PATIENT
  Age: 50 Year
  Sex: Female
  Weight: 99.7 kg

DRUGS (10)
  1. PLAVIX [Suspect]
     Indication: CARDIAC OPERATION
     Dosage: 75 MG QD - ORAL
     Route: 048
     Dates: start: 20060101, end: 20060101
  2. VALSARTAN [Concomitant]
  3. METOPROLOL TARTRATE [Concomitant]
  4. HYDROCHLOROTHIAZIDE [Concomitant]
  5. METFORMIN HCL [Concomitant]
  6. ACETYLSALICYLIC ACID SRT [Concomitant]
  7. POTASSIUM CHLORIDE [Concomitant]
  8. LANSOPRAZOLE [Concomitant]
  9. ........... [Concomitant]
  10. INSULIN [Concomitant]

REACTIONS (4)
  - DYSPNOEA [None]
  - HYPERSENSITIVITY [None]
  - PHARYNGEAL OEDEMA [None]
  - SWELLING FACE [None]
